FAERS Safety Report 22332117 (Version 1)
Quarter: 2023Q2

REPORT INFORMATION
  Report Type: Spontaneous
  Country: US (occurrence: None)
  Receive Date: 20230516
  Receipt Date: 20230516
  Transmission Date: 20230722
  Serious: No
  Sender: FDA-Public Use
  Company Number: None

PATIENT
  Age: 67 Year
  Sex: Female
  Weight: 56.25 kg

DRUGS (4)
  1. ALENDRONATE SODIUM [Suspect]
     Active Substance: ALENDRONATE SODIUM
     Indication: Osteoporosis
     Dosage: FREQUENCY : WEEKLY;?
     Route: 048
     Dates: start: 20230410, end: 20230508
  2. LEVOTHYROXINE [Concomitant]
     Active Substance: LEVOTHYROXINE
  3. CALTRATE [Concomitant]
     Active Substance: CALCIUM CARBONATE
  4. FISH OIL [Concomitant]
     Active Substance: FISH OIL

REACTIONS (5)
  - Product substitution issue [None]
  - Rash [None]
  - Rash [None]
  - Pruritus [None]
  - Paraesthesia [None]

NARRATIVE: CASE EVENT DATE: 20230410
